FAERS Safety Report 25471783 (Version 3)
Quarter: 2025Q3

REPORT INFORMATION
  Report Type: Spontaneous
  Country: BR (occurrence: BR)
  Receive Date: 20250624
  Receipt Date: 20250821
  Transmission Date: 20251021
  Serious: Yes (Other)
  Sender: NOVO NORDISK
  Company Number: BR-NOVOPROD-1463180

PATIENT
  Age: 48 Year
  Sex: Female
  Weight: 105 kg

DRUGS (1)
  1. SAXENDA [Suspect]
     Active Substance: LIRAGLUTIDE
     Indication: Obesity
     Dates: start: 2022, end: 2023

REACTIONS (5)
  - Skin cosmetic procedure [Unknown]
  - Procedural complication [Unknown]
  - Emotional disorder [Unknown]
  - Weight increased [Unknown]
  - Asthenia [Unknown]

NARRATIVE: CASE EVENT DATE: 20230606
